FAERS Safety Report 7162343-0 (Version None)
Quarter: 2010Q4

REPORT INFORMATION
  Report Type: 
  Country: None (occurrence: None)
  Receive Date: 20101215
  Receipt Date: 20091014
  Transmission Date: 20110411
  Serious: Yes (Other)
  Sender: FDA-Public Use
  Company Number: GB-PFIZER INC-2009273508

PATIENT
  Age: 40 Year

DRUGS (2)
  1. LYRICA [Suspect]
     Indication: EPILEPSY
     Dosage: 225 MG, 2X/DAY
  2. DIAZEPAM [Concomitant]
     Dosage: 5 MG, 2X/DAY AS REQUIRED
     Route: 048
     Dates: start: 20090601

REACTIONS (4)
  - ANXIETY [None]
  - DIZZINESS [None]
  - PETIT MAL EPILEPSY [None]
  - SOMNOLENCE [None]
